FAERS Safety Report 9172962 (Version 2)
Quarter: 2013Q2

REPORT INFORMATION
  Report Type: Spontaneous
  Country: US (occurrence: US)
  Receive Date: 20130320
  Receipt Date: 20130404
  Transmission Date: 20140414
  Serious: No
  Sender: FDA-Public Use
  Company Number: US-009507513-1303USA007255

PATIENT
  Age: 61 Year
  Sex: Female

DRUGS (2)
  1. DULERA [Suspect]
     Indication: COUGH
     Dosage: 100/5 MCG, BID
     Route: 055
     Dates: start: 20130312
  2. DULERA [Suspect]
     Indication: WHEEZING

REACTIONS (3)
  - Diarrhoea [Recovering/Resolving]
  - Underdose [Unknown]
  - Incorrect route of drug administration [Unknown]
